FAERS Safety Report 6258219-3 (Version None)
Quarter: 2009Q3

REPORT INFORMATION
  Report Type: 
  Country: None (occurrence: None)
  Receive Date: 20090702
  Receipt Date: 20090702
  Transmission Date: 20100115
  Serious: Yes (Hospitalization)
  Sender: FDA-Public Use
  Company Number: None

PATIENT
  Age: 70 Year
  Sex: Female
  Weight: 54.4316 kg

DRUGS (2)
  1. LEVAQUIN [Suspect]
     Indication: LOWER RESPIRATORY TRACT INFECTION
     Dosage: THREE -3- TABLETS 1 DAILY FOR 3 DAYS
  2. LEVAQUIN [Suspect]
     Indication: POST PROCEDURAL COMPLICATION
     Dosage: THREE -3- TABLETS 1 DAILY FOR 3 DAYS

REACTIONS (5)
  - ABASIA [None]
  - DYSPHAGIA [None]
  - TENDON RUPTURE [None]
  - TENDONITIS [None]
  - WHEELCHAIR USER [None]
